FAERS Safety Report 9392107 (Version 3)
Quarter: 2014Q1

REPORT INFORMATION
  Report Type: Spontaneous
  Country: US (occurrence: US)
  Receive Date: 20130709
  Receipt Date: 20140305
  Transmission Date: 20141002
  Serious: Yes (Hospitalization)
  Sender: FDA-Public Use
  Company Number: US-GILEAD-2013-0078599

PATIENT
  Age: 63 Year
  Sex: Female

DRUGS (3)
  1. LETAIRIS [Suspect]
     Indication: PULMONARY HYPERTENSION
     Dosage: 10 MG, QD
     Route: 048
     Dates: start: 20100528
  2. LETAIRIS [Suspect]
     Indication: SJOGREN^S SYNDROME
  3. ADCIRCA [Concomitant]

REACTIONS (3)
  - Laceration [Unknown]
  - Fall [Recovering/Resolving]
  - Fluid retention [Unknown]
